FAERS Safety Report 13691593 (Version 1)
Quarter: 2017Q2

REPORT INFORMATION
  Report Type: Spontaneous
  Country: IE (occurrence: IE)
  Receive Date: 20170626
  Receipt Date: 20170626
  Transmission Date: 20170830
  Serious: Yes (Other)
  Sender: FDA-Public Use
  Company Number: IE-TEVA-778738ACC

PATIENT
  Age: 35 Year
  Sex: Female
  Weight: 64.9 kg

DRUGS (2)
  1. PROVIGIL [Suspect]
     Active Substance: MODAFINIL
     Dosage: 200MG MANE + 100MG LUNCH TIME
     Route: 048
     Dates: start: 20170302
  2. PROVIGIL [Suspect]
     Active Substance: MODAFINIL
     Indication: SLEEP DISORDER
     Route: 048
     Dates: start: 20161117, end: 20170504

REACTIONS (4)
  - Mouth ulceration [Recovered/Resolved]
  - Gingival abscess [Recovered/Resolved]
  - Dry mouth [Recovered/Resolved]
  - Sensitivity of teeth [Recovered/Resolved]

NARRATIVE: CASE EVENT DATE: 20170407
